FAERS Safety Report 8218219-0 (Version None)
Quarter: 2012Q1

REPORT INFORMATION
  Report Type: 
  Country: None (occurrence: None)
  Receive Date: 20120319
  Receipt Date: 20120308
  Transmission Date: 20120608
  Serious: Yes (Other)
  Sender: FDA-Public Use
  Company Number: US-ROCHE-1049434

PATIENT
  Sex: Female
  Weight: 99.88 kg

DRUGS (23)
  1. SYNTHROID [Concomitant]
  2. PROMETHAZINE [Concomitant]
  3. PERCOCET [Concomitant]
  4. SINGULAIR [Concomitant]
  5. VICODIN [Concomitant]
  6. IRON [Concomitant]
  7. CYMBALTA [Concomitant]
  8. OXYCODONE HCL [Concomitant]
  9. SEROQUEL [Concomitant]
  10. ADVAIR DISKUS 100/50 [Concomitant]
  11. VITAMIN D [Concomitant]
  12. CITRACAL [Concomitant]
  13. SPIRIVA [Concomitant]
  14. XOPENEX [Concomitant]
  15. XANAX [Concomitant]
  16. LISINOPRIL [Concomitant]
  17. LUNESTA [Concomitant]
  18. ALLEGRA [Concomitant]
  19. NORVASC [Concomitant]
  20. OMALIZUMAB [Suspect]
     Indication: ASTHMA
     Route: 058
     Dates: start: 20110301
  21. VITAMIN B-12 [Concomitant]
  22. GABAPENTIN [Concomitant]
  23. SIMETHICONE [Concomitant]

REACTIONS (1)
  - KNEE ARTHROPLASTY [None]
